FAERS Safety Report 13174416 (Version 2)
Quarter: 2017Q1

REPORT INFORMATION
  Report Type: Spontaneous
  Country: IR (occurrence: IR)
  Receive Date: 20170201
  Receipt Date: 20170323
  Transmission Date: 20170428
  Serious: Yes (Hospitalization, Other)
  Sender: FDA-Public Use
  Company Number: IR-BIOVITRUM-2017IR0077

PATIENT
  Age: 2 Year
  Sex: Male

DRUGS (4)
  1. ETANERCEPT [Concomitant]
     Active Substance: ETANERCEPT
     Route: 058
  2. PREDNISOLONE. [Concomitant]
     Active Substance: PREDNISOLONE
  3. NEOTIGASON [Concomitant]
     Active Substance: ACITRETIN
  4. KINERET [Suspect]
     Active Substance: ANAKINRA
     Indication: AUTOINFLAMMATORY DISEASE
     Dates: start: 201701

REACTIONS (2)
  - Rash generalised [Unknown]
  - Anaphylactoid shock [Unknown]

NARRATIVE: CASE EVENT DATE: 201701
